FAERS Safety Report 21272501 (Version 1)
Quarter: 2022Q3

REPORT INFORMATION
  Report Type: Spontaneous
  Country: DE (occurrence: DE)
  Receive Date: 20220830
  Receipt Date: 20220830
  Transmission Date: 20221026
  Serious: Yes (Other)
  Sender: FDA-Public Use
  Company Number: DE-GILEAD-2022-0595108

PATIENT
  Sex: Male

DRUGS (2)
  1. DESCOVY [Suspect]
     Active Substance: EMTRICITABINE\TENOFOVIR ALAFENAMIDE FUMARATE
     Indication: HIV infection
     Route: 065
  2. DOLUTEGRAVIR [Concomitant]
     Active Substance: DOLUTEGRAVIR
     Indication: HIV infection

REACTIONS (4)
  - Suicidal ideation [Unknown]
  - Major depression [Unknown]
  - HIV-associated neurocognitive disorder [Not Recovered/Not Resolved]
  - Dopamine transporter scintigraphy abnormal [Unknown]
